FAERS Safety Report 10221117 (Version 2)
Quarter: 2014Q2

REPORT INFORMATION
  Report Type: Spontaneous
  Country: DE (occurrence: DE)
  Receive Date: 20140606
  Receipt Date: 20140606
  Transmission Date: 20141212
  Serious: Yes (Hospitalization, Other)
  Sender: FDA-Public Use
  Company Number: DE-JNJFOC-20140416243

PATIENT
  Sex: Male
  Weight: 74 kg

DRUGS (5)
  1. XARELTO [Suspect]
     Indication: CARDIAC FAILURE
     Route: 048
     Dates: start: 20130802, end: 20140206
  2. TOREM [Concomitant]
     Route: 048
  3. CORANGIN [Concomitant]
     Route: 048
  4. TEBONIN [Concomitant]
     Route: 065
  5. CASODEX [Concomitant]
     Route: 065

REACTIONS (2)
  - Bladder tamponade [Unknown]
  - Haematuria [Unknown]
